FAERS Safety Report 5134297-X (Version None)
Quarter: 2006Q4

REPORT INFORMATION
  Report Type: 
  Country: None (occurrence: None)
  Receive Date: 20060831
  Receipt Date: 20060707
  Transmission Date: 20070319
  Serious: No
  Sender: FDA-Public Use
  Company Number: 2006-BP-07823BP

PATIENT
  Sex: Male

DRUGS (7)
  1. SPIRIVA [Suspect]
     Indication: CHRONIC OBSTRUCTIVE PULMONARY DISEASE
     Dosage: 18 MCG (18 MCG,1 IN 1 D),IH
     Dates: start: 20041018
  2. OXYGEN (OXYGEN) [Concomitant]
  3. ADVAIR (SERETIDE /01420901/) [Concomitant]
  4. WARFARIN SODIUM [Concomitant]
  5. THEOPHYLLINE [Concomitant]
  6. DIOVAN [Concomitant]
  7. ALBUTEROL [Concomitant]

REACTIONS (5)
  - CONSTIPATION [None]
  - DIZZINESS [None]
  - MICTURITION URGENCY [None]
  - NERVOUSNESS [None]
  - POLLAKIURIA [None]
